FAERS Safety Report 5629332-6 (Version None)
Quarter: 2008Q1

REPORT INFORMATION
  Report Type: 
  Country: None (occurrence: None)
  Receive Date: 20080218
  Receipt Date: 20080117
  Transmission Date: 20080703
  Serious: No
  Sender: FDA-Public Use
  Company Number: US-BAYER-200811823NA

PATIENT
  Age: 38 Year
  Sex: Female
  Weight: 64 kg

DRUGS (1)
  1. MIRENA [Suspect]
     Indication: MENORRHAGIA
     Route: 015
     Dates: start: 20071111, end: 20080110

REACTIONS (3)
  - POST PROCEDURAL HAEMORRHAGE [None]
  - UTERINE DISORDER [None]
  - UTERINE LEIOMYOMA [None]
